FAERS Safety Report 5148559-3 (Version None)
Quarter: 2006Q4

REPORT INFORMATION
  Report Type: 
  Country: None (occurrence: None)
  Receive Date: 20061107
  Receipt Date: 20061027
  Transmission Date: 20070319
  Serious: Yes (Hospitalization, Other)
  Sender: FDA-Public Use
  Company Number: A-CH2006-13236

PATIENT
  Age: 55 Year

DRUGS (2)
  1. TRACLEER [Suspect]
     Indication: CONNECTIVE TISSUE DISORDER
     Dosage: SEE IMAGE
     Route: 048
     Dates: start: 20050812, end: 20060322
  2. TRACLEER [Suspect]
     Indication: CONNECTIVE TISSUE DISORDER
     Dosage: SEE IMAGE
     Route: 048
     Dates: end: 20060322

REACTIONS (2)
  - DISEASE PROGRESSION [None]
  - LUNG TRANSPLANT [None]
